FAERS Safety Report 20998059 (Version 1)
Quarter: 2022Q2

REPORT INFORMATION
  Report Type: Spontaneous
  Country: FR (occurrence: FR)
  Receive Date: 20220623
  Receipt Date: 20220623
  Transmission Date: 20220720
  Serious: Yes (Hospitalization)
  Sender: FDA-Public Use
  Company Number: None

PATIENT
  Age: 60 Year
  Sex: Male
  Weight: 57 kg

DRUGS (1)
  1. FLUOROURACIL [Suspect]
     Active Substance: FLUOROURACIL
     Indication: Product used for unknown indication
     Dosage: 3380 MG IN 12 HOURS
     Route: 041
     Dates: start: 20220427, end: 20220427

REACTIONS (2)
  - Overdose [Unknown]
  - Wrong rate [Unknown]

NARRATIVE: CASE EVENT DATE: 20220427
